FAERS Safety Report 5488554-8 (Version None)
Quarter: 2007Q3

REPORT INFORMATION
  Report Type: 
  Country: None (occurrence: None)
  Receive Date: 20070925
  Receipt Date: 20070731
  Transmission Date: 20080115
  Serious: No
  Sender: FDA-Public Use
  Company Number: 2007US001792

PATIENT
  Sex: Male

DRUGS (2)
  1. VESICARE [Suspect]
     Indication: POLLAKIURIA
     Dosage: 5 MG, /D, ORAL
     Route: 048
     Dates: start: 20070601, end: 20070701
  2. BENADRYL [Concomitant]

REACTIONS (2)
  - BLISTER [None]
  - EYE PRURITUS [None]
